FAERS Safety Report 5812942-0 (Version None)
Quarter: 2008Q3

REPORT INFORMATION
  Report Type: 
  Country: None (occurrence: None)
  Receive Date: 20080717
  Receipt Date: 20070806
  Transmission Date: 20090109
  Serious: No
  Sender: FDA-Public Use
  Company Number: A0668031A

PATIENT
  Age: 28 Year
  Sex: Male

DRUGS (1)
  1. NICORETTE [Suspect]

REACTIONS (4)
  - CHEST PAIN [None]
  - CHEST TUBE INSERTION [None]
  - COLLAPSE OF LUNG [None]
  - PLEURISY [None]
